FAERS Safety Report 19312131 (Version 1)
Quarter: 2021Q2

REPORT INFORMATION
  Report Type: Spontaneous
  Country: US (occurrence: US)
  Receive Date: 20210527
  Receipt Date: 20210527
  Transmission Date: 20210717
  Serious: No
  Sender: FDA-Public Use
  Company Number: US-JNJFOC-20210530204

PATIENT

DRUGS (1)
  1. PEPCID AC [Suspect]
     Active Substance: FAMOTIDINE
     Indication: HYPERCHLORHYDRIA
     Dosage: EVERY NIGHT THE PATIENT GETS ACID
     Route: 065

REACTIONS (3)
  - Nausea [Unknown]
  - Dyspepsia [Unknown]
  - Hyperchlorhydria [Unknown]
